FAERS Safety Report 7283704-5 (Version None)
Quarter: 2011Q1

REPORT INFORMATION
  Report Type: 
  Country: None (occurrence: None)
  Receive Date: 20110209
  Receipt Date: 20110131
  Transmission Date: 20110831
  Serious: Yes (Death, Other)
  Sender: FDA-Public Use
  Company Number: BR-ROCHE-745063

PATIENT
  Sex: Female
  Weight: 79 kg

DRUGS (6)
  1. NIFEDIPINA [Concomitant]
  2. HYDROCHLOROTHIAZIDE [Concomitant]
  3. PREDNISONE [Concomitant]
  4. TOCILIZUMAB [Suspect]
     Indication: RHEUMATOID ARTHRITIS
     Dosage: FORM: INFUSION
     Route: 042
     Dates: start: 20100723, end: 20101101
  5. FOLIC ACID [Concomitant]
  6. ENALAPRIL MALEATE [Concomitant]

REACTIONS (3)
  - DIABETES MELLITUS INADEQUATE CONTROL [None]
  - SEPSIS [None]
  - DEEP VEIN THROMBOSIS [None]
